FAERS Safety Report 9315739 (Version 2)
Quarter: 2013Q2

REPORT INFORMATION
  Report Type: Spontaneous
  Country: US (occurrence: US)
  Receive Date: 20130529
  Receipt Date: 20130610
  Transmission Date: 20140414
  Serious: Yes (Hospitalization)
  Sender: FDA-Public Use
  Company Number: US-B.I. PHARMACEUTICALS,INC./RIDGEFIELD-2013-BI-13789BP

PATIENT
  Age: 60 Year
  Sex: Male
  Weight: 68 kg

DRUGS (9)
  1. JENTADUETO [Suspect]
     Indication: TYPE 2 DIABETES MELLITUS
     Dosage: STRENGTH: 2.5 MG / 1000 MG; DAILY DOSE: 5 MG / 2000 MG
     Route: 048
     Dates: start: 20130505, end: 20130510
  2. JENTADUETO [Suspect]
     Dosage: STRENGTH: 2.5 MG / 1000 MG; DAILY DOSE: 2.5 MG / 1000 MG
     Dates: start: 20130416, end: 20130508
  3. ATORVASTATIN [Concomitant]
     Dosage: 20 MG
     Route: 048
     Dates: start: 20130320
  4. ATORVASTATIN [Concomitant]
     Dosage: 20 MG
     Route: 048
     Dates: start: 20130425
  5. HYDROCHOROTHIAZIDE [Concomitant]
     Dosage: 25 MG
     Route: 048
     Dates: start: 20121012
  6. HYDROCHOROTHIAZIDE [Concomitant]
     Dosage: 25 MG
     Route: 048
     Dates: start: 20120712
  7. PANTOPRAZOLE [Concomitant]
     Dosage: 40 MG
     Route: 048
  8. FLUCONAZOLE [Concomitant]
     Dosage: 28.5714 MG
     Route: 048
     Dates: start: 20130405
  9. METFORMIN [Concomitant]
     Dosage: 1000 MG

REACTIONS (1)
  - Pancreatitis acute [Recovered/Resolved]
